FAERS Safety Report 13024025 (Version 1)
Quarter: 2016Q4

REPORT INFORMATION
  Report Type: Spontaneous
  Country: CN (occurrence: CN)
  Receive Date: 20161213
  Receipt Date: 20161213
  Transmission Date: 20170207
  Serious: Yes (Other)
  Sender: FDA-Public Use
  Company Number: CN-ASTRAZENECA-2016SF30496

PATIENT
  Age: 25932 Day
  Sex: Male
  Weight: 65 kg

DRUGS (13)
  1. BRILINTA [Suspect]
     Active Substance: TICAGRELOR
     Indication: ARTERIOSCLEROSIS
     Route: 048
     Dates: start: 20160713, end: 20160713
  2. ASPIRIN. [Suspect]
     Active Substance: ASPIRIN
     Indication: DRUG THERAPY
     Route: 048
     Dates: start: 20160713, end: 20160713
  3. ASPIRIN. [Suspect]
     Active Substance: ASPIRIN
     Indication: DRUG THERAPY
     Route: 048
     Dates: start: 20160714, end: 20160717
  4. BRILINTA [Suspect]
     Active Substance: TICAGRELOR
     Indication: ARTERIOSCLEROSIS
     Route: 048
     Dates: start: 20160714, end: 20160717
  5. TEPRENONE [Concomitant]
     Active Substance: TEPRENONE
     Indication: VOMITING
     Route: 048
     Dates: start: 20160713, end: 20160717
  6. ASPIRIN. [Suspect]
     Active Substance: ASPIRIN
     Indication: ARTERIOSCLEROSIS
     Route: 048
     Dates: start: 20160713, end: 20160713
  7. LANSOPRAZOLE. [Concomitant]
     Active Substance: LANSOPRAZOLE
     Indication: PROPHYLAXIS
     Route: 041
     Dates: start: 20160713, end: 20160715
  8. FONDAPARINUX SODIUM. [Suspect]
     Active Substance: FONDAPARINUX SODIUM
     Indication: ARTERIOSCLEROSIS
     Route: 058
     Dates: start: 20160713, end: 20160717
  9. BRILINTA [Suspect]
     Active Substance: TICAGRELOR
     Indication: DRUG THERAPY
     Route: 048
     Dates: start: 20160713, end: 20160713
  10. BRILINTA [Suspect]
     Active Substance: TICAGRELOR
     Indication: DRUG THERAPY
     Route: 048
     Dates: start: 20160714, end: 20160717
  11. ASPIRIN. [Suspect]
     Active Substance: ASPIRIN
     Indication: ARTERIOSCLEROSIS
     Route: 048
     Dates: start: 20160714, end: 20160717
  12. TIROFIBAN HYDROCHLORIDE. [Suspect]
     Active Substance: TIROFIBAN HYDROCHLORIDE
     Indication: ARTERIOSCLEROSIS
     Route: 065
     Dates: start: 20160713, end: 20160713
  13. SODIUM CHLORIDE. [Concomitant]
     Active Substance: SODIUM CHLORIDE
     Indication: ARTERIOSCLEROSIS
     Route: 065
     Dates: start: 20160713, end: 20160713

REACTIONS (7)
  - Upper gastrointestinal haemorrhage [Recovered/Resolved]
  - Haematemesis [Recovered/Resolved]
  - Melaena [Recovered/Resolved]
  - Haematochezia [Recovered/Resolved]
  - Vomiting [Recovered/Resolved]
  - Haemoglobin decreased [Recovered/Resolved]
  - Red blood cell count decreased [Recovered/Resolved]

NARRATIVE: CASE EVENT DATE: 20160713
